FAERS Safety Report 9709704 (Version 1)
Quarter: 2013Q4

REPORT INFORMATION
  Report Type: Report from Study
  Country: CA (occurrence: CA)
  Receive Date: 20131126
  Receipt Date: 20131126
  Transmission Date: 20140711
  Serious: Yes (Hospitalization)
  Sender: FDA-Public Use
  Company Number: CA-JNJFOC-20131112400

PATIENT
  Age: 30 Year
  Sex: Female
  Weight: 77 kg

DRUGS (1)
  1. REMICADE [Suspect]
     Indication: CROHN^S DISEASE
     Dosage: INDUCTION DOSE THEN EVERY 8 WEEKS
     Route: 042
     Dates: start: 20131015

REACTIONS (3)
  - Abscess [Unknown]
  - Intestinal resection [Unknown]
  - Enterostomy [Unknown]
